FAERS Safety Report 25103031 (Version 1)
Quarter: 2025Q1

REPORT INFORMATION
  Report Type: Report from Study
  Country: US (occurrence: US)
  Receive Date: 20250321
  Receipt Date: 20250321
  Transmission Date: 20250408
  Serious: Yes (Hospitalization)
  Sender: DR REDDYS
  Company Number: US-DRL-USA-USA/2025/03/004097

PATIENT
  Age: 29 Year
  Sex: Female
  Weight: 64.41 kg

DRUGS (1)
  1. JAVYGTOR [Suspect]
     Active Substance: SAPROPTERIN DIHYDROCHLORIDE
     Indication: Phenylketonuria
     Dosage: DISSOLVE 3 PACKETS (1500 MG) IN 4 TO 8 OUNCE OF WATER OR APPLE JUICE AND TAKE BY MOUTH
     Route: 048

REACTIONS (3)
  - Illness [Unknown]
  - Product dose omission issue [Unknown]
  - Overdose [Unknown]

NARRATIVE: CASE EVENT DATE: 20250101
